FAERS Safety Report 18682686 (Version 1)
Quarter: 2020Q4

REPORT INFORMATION
  Report Type: Spontaneous
  Country: US (occurrence: US)
  Receive Date: 20201229
  Receipt Date: 20201229
  Transmission Date: 20210114
  Serious: Yes (Hospitalization)
  Sender: FDA-Public Use
  Company Number: US-AMGEN-USASP2020210269

PATIENT
  Age: 63 Year
  Sex: Female

DRUGS (1)
  1. PROLIA [Suspect]
     Active Substance: DENOSUMAB
     Indication: OSTEOPOROSIS POSTMENOPAUSAL
     Dosage: 60 MILLIGRAM
     Route: 065
     Dates: start: 202010

REACTIONS (5)
  - Hypocalcaemia [Unknown]
  - Myalgia [Unknown]
  - Palpitations [Unknown]
  - Arthralgia [Unknown]
  - Wrist fracture [Unknown]

NARRATIVE: CASE EVENT DATE: 202010
